FAERS Safety Report 5988255-3 (Version None)
Quarter: 2008Q4

REPORT INFORMATION
  Report Type: 
  Country: None (occurrence: None)
  Receive Date: 20081204
  Receipt Date: 20081120
  Transmission Date: 20090506
  Serious: Yes (Hospitalization)
  Sender: FDA-Public Use
  Company Number: KV200800424

PATIENT
  Age: 35 Year
  Sex: Female

DRUGS (5)
  1. MORPHINE SULFATE [Suspect]
     Indication: BACK INJURY
     Dosage: 15 MG, BID, ORAL
     Route: 048
     Dates: start: 20080101, end: 20081001
  2. MORPHINE SULFATE [Suspect]
     Indication: PAIN
     Dosage: 15 MG, BID, ORAL
     Route: 048
     Dates: start: 20080101, end: 20081001
  3. LISINORPIL (LISINOPRIL) [Concomitant]
  4. METFORMIN HCL [Concomitant]
  5. NEURONTIN [Concomitant]

REACTIONS (3)
  - BLOOD PRESSURE DECREASED [None]
  - LOSS OF CONSCIOUSNESS [None]
  - PRODUCT QUALITY ISSUE [None]
